FAERS Safety Report 15609628 (Version 1)
Quarter: 2018Q4

REPORT INFORMATION
  Report Type: Spontaneous
  Country: FR (occurrence: FR)
  Receive Date: 20181113
  Receipt Date: 20181113
  Transmission Date: 20190205
  Serious: Yes (Hospitalization, Other)
  Sender: FDA-Public Use
  Company Number: FR-BRISTOL-MYERS SQUIBB COMPANY-BMS-2018-102547

PATIENT
  Age: 50 Year
  Sex: Male
  Weight: 74 kg

DRUGS (1)
  1. OPDIVO [Suspect]
     Active Substance: NIVOLUMAB
     Indication: LARYNGEAL SQUAMOUS CELL CARCINOMA
     Dosage: 480 MG, UNK
     Route: 042
     Dates: start: 20180904, end: 20180904

REACTIONS (2)
  - Hepatitis [Recovering/Resolving]
  - Hepatic failure [Recovering/Resolving]

NARRATIVE: CASE EVENT DATE: 20180919
